FAERS Safety Report 6932511-9 (Version None)
Quarter: 2010Q3

REPORT INFORMATION
  Report Type: 
  Country: None (occurrence: None)
  Receive Date: 20100819
  Receipt Date: 20100806
  Transmission Date: 20110219
  Serious: Yes (Other)
  Sender: FDA-Public Use
  Company Number: JP-ELI_LILLY_AND_COMPANY-JP201007007364

PATIENT
  Sex: Male
  Weight: 53 kg

DRUGS (8)
  1. CYMBALTA [Suspect]
     Indication: DEPRESSION
     Dosage: 20 MG, DAILY (1/D)
     Route: 048
     Dates: start: 20100607, end: 20100620
  2. CYMBALTA [Suspect]
     Dosage: 40 MG, DAILY (1/D)
     Route: 048
     Dates: start: 20100621, end: 20100705
  3. MIRTAZAPINE [Concomitant]
     Indication: DEPRESSION
     Dosage: 15 MG, DAILY (1/D)
     Route: 048
     Dates: start: 20100415, end: 20100422
  4. MIRTAZAPINE [Concomitant]
     Dosage: 30 MG, DAILY (1/D)
     Route: 048
     Dates: start: 20100423, end: 20100513
  5. MIRTAZAPINE [Concomitant]
     Dosage: 45 MG, 2/D
     Route: 048
     Dates: start: 20100514, end: 20100606
  6. MIRTAZAPINE [Concomitant]
     Dosage: 30 MG, 2/D
     Route: 048
     Dates: start: 20100607, end: 20100620
  7. MIRTAZAPINE [Concomitant]
     Dosage: 15 MG, DAILY (1/D)
     Route: 048
     Dates: start: 20100621, end: 20100705
  8. ETISEDAN [Concomitant]
     Dosage: 0.5 MG, DAILY (1/D)
     Route: 048
     Dates: start: 20100415

REACTIONS (1)
  - ACTIVATION SYNDROME [None]
